FAERS Safety Report 7274496-4 (Version None)
Quarter: 2011Q1

REPORT INFORMATION
  Report Type: 
  Country: None (occurrence: None)
  Receive Date: 20110204
  Receipt Date: 20110127
  Transmission Date: 20110831
  Serious: Yes (Hospitalization)
  Sender: FDA-Public Use
  Company Number: NL-JNJFOC-20030803156

PATIENT
  Sex: Male

DRUGS (3)
  1. BETAMETHASON [Concomitant]
     Route: 065
  2. PULMICORT [Concomitant]
     Route: 055
  3. TRISPORAL [Suspect]
     Indication: TINEA PEDIS
     Route: 048

REACTIONS (2)
  - MEDICATION ERROR [None]
  - PANCREATITIS [None]
